FAERS Safety Report 18099472 (Version 3)
Quarter: 2020Q3

REPORT INFORMATION
  Report Type: Report from Study
  Country: US (occurrence: US)
  Receive Date: 20200731
  Receipt Date: 20200918
  Transmission Date: 20201103
  Serious: Yes (Hospitalization)
  Sender: FDA-Public Use
  Company Number: US-EMD SERONO-9171948

PATIENT
  Age: 65 Year
  Sex: Female
  Weight: 79 kg

DRUGS (3)
  1. MSC2490484A (DNA?PK INHIBITOR) [Suspect]
     Active Substance: PEPOSERTIB
     Indication: PANCREATIC CARCINOMA
     Route: 048
     Dates: start: 20200618, end: 20200624
  2. ELIQUIS [Concomitant]
     Active Substance: APIXABAN
     Indication: PULMONARY EMBOLISM
     Route: 048
     Dates: start: 201703
  3. AVELUMAB [Suspect]
     Active Substance: AVELUMAB
     Indication: PANCREATIC CARCINOMA
     Route: 042
     Dates: start: 20200618, end: 20200618

REACTIONS (2)
  - Pneumonitis [Recovered/Resolved]
  - Rash [Recovered/Resolved]

NARRATIVE: CASE EVENT DATE: 20200626
